FAERS Safety Report 8335550-9 (Version None)
Quarter: 2012Q2

REPORT INFORMATION
  Report Type: 
  Country: None (occurrence: None)
  Receive Date: 20120503
  Receipt Date: 20120418
  Transmission Date: 20120825
  Serious: Yes (Other)
  Sender: FDA-Public Use
  Company Number: CHPA2012US009704

PATIENT
  Age: 64 Year
  Sex: Female

DRUGS (1)
  1. MAALOX ANTACID/ANTIGAS MAX LIQ [Suspect]
     Indication: ABDOMINAL DISCOMFORT
     Dosage: 6-8 TEASPOONS A DAY
     Route: 048

REACTIONS (4)
  - INCORRECT DRUG ADMINISTRATION DURATION [None]
  - BURNING SENSATION [None]
  - CHRONIC FATIGUE SYNDROME [None]
  - BEDRIDDEN [None]
